FAERS Safety Report 13354919 (Version 1)
Quarter: 2017Q1

REPORT INFORMATION
  Report Type: Spontaneous
  Country: IN (occurrence: IN)
  Receive Date: 20170321
  Receipt Date: 20170321
  Transmission Date: 20170429
  Serious: Yes (Other)
  Sender: FDA-Public Use
  Company Number: IN-TORRENT-00000964

PATIENT
  Age: 66 Year
  Sex: Female

DRUGS (3)
  1. RISPERIDONE. [Suspect]
     Active Substance: RISPERIDONE
  2. LEVOSULPIRIDE ER CAPSULES [Suspect]
     Active Substance: LEVOSULPIRIDE
  3. ESOMEPRAZOLE DR [Suspect]
     Active Substance: ESOMEPRAZOLE

REACTIONS (2)
  - Bradykinesia [Unknown]
  - Parkinsonism [Recovering/Resolving]
